FAERS Safety Report 5203534-5 (Version None)
Quarter: 2007Q1

REPORT INFORMATION
  Report Type: 
  Country: None (occurrence: None)
  Receive Date: 20070105
  Receipt Date: 20061228
  Transmission Date: 20070707
  Serious: Yes (Hospitalization)
  Sender: FDA-Public Use
  Company Number: 2006SP007754

PATIENT
  Age: 38 Year
  Sex: Male

DRUGS (5)
  1. VIRAFERONPEG (PEGINTERFERON ALFA-2B) (PEGINTERFERON ALFA-2B) [Suspect]
     Indication: HEPATITIS C
     Dosage: 150 MCG;QW;SC
     Route: 058
     Dates: start: 20060926, end: 20061108
  2. REBETOL [Suspect]
     Indication: HEPATITIS C
     Dosage: 1000 MG;QD;PO
     Route: 048
     Dates: start: 20060919, end: 20061108
  3. SUSTIVA [Concomitant]
  4. COMBIVIR [Concomitant]
  5. ARANESP [Suspect]
     Indication: ANAEMIA
     Dosage: 130 MCG;ONCE;SC
     Route: 058
     Dates: start: 20061019

REACTIONS (8)
  - ANAEMIA [None]
  - AXILLARY VEIN THROMBOSIS [None]
  - PELVIC VENOUS THROMBOSIS [None]
  - PLATELET COUNT ABNORMAL [None]
  - PROTEIN S DEFICIENCY [None]
  - PULMONARY EMBOLISM [None]
  - PYREXIA [None]
  - THROMBOPHLEBITIS [None]
